FAERS Safety Report 9304339 (Version 2)
Quarter: 2013Q2

REPORT INFORMATION
  Report Type: Report from Study
  Country: CA (occurrence: CA)
  Receive Date: 20130522
  Receipt Date: 20130528
  Transmission Date: 20140414
  Serious: Yes (Hospitalization)
  Sender: FDA-Public Use
  Company Number: CA-009507513-1305CAN012850

PATIENT
  Age: 31 Year
  Sex: Male
  Weight: 123.36 kg

DRUGS (31)
  1. BOCEPREVIR [Suspect]
     Indication: HEPATITIS C
     Dosage: 800 MG, TID
     Route: 048
     Dates: start: 20130405, end: 20130522
  2. PEGETRON [Suspect]
     Indication: HEPATITIS C
     Dosage: 150 MICROGRAM, QW
     Route: 058
     Dates: start: 20130405, end: 20130522
  3. PEGETRON [Suspect]
     Dosage: 1400 MG, QD
     Route: 048
     Dates: start: 20130405, end: 20130522
  4. HYDROVAL [Concomitant]
     Indication: ECZEMA
     Dosage: 0.2 %, BID
     Route: 061
     Dates: start: 20121108
  5. BISOPROLOL [Concomitant]
     Indication: HYPERTENSION
     Dosage: 10 MG, QD
     Route: 048
     Dates: start: 20121108
  6. ZYPREXA ZYDIS [Concomitant]
     Indication: AFFECTIVE DISORDER
     Dosage: 15 MG, HS
     Route: 048
     Dates: start: 20121008
  7. ZYPREXA ZYDIS [Concomitant]
     Dosage: 5 MG, QD
     Route: 048
     Dates: start: 20121008
  8. ZYPREXA ZYDIS [Concomitant]
     Dosage: 10 MG, QAM
     Route: 048
     Dates: start: 20121008
  9. PAROXETINE [Concomitant]
     Indication: DEPRESSION
     Dosage: 30 MG, QD
     Route: 048
     Dates: start: 20121008
  10. SEROQUEL XR [Concomitant]
     Indication: ANXIETY
     Dosage: 300 MG, QD
     Route: 048
     Dates: start: 20121008
  11. AMLODIPINE [Concomitant]
     Indication: HYPERTENSION
     Dosage: 10 MG, QD
     Route: 048
     Dates: start: 20121008
  12. ESOMEPRAZOLE [Concomitant]
     Indication: DYSPEPSIA
     Dosage: 40 MG, QD
     Route: 048
     Dates: start: 20121008
  13. OXYBUTYNIN [Concomitant]
     Dosage: 5 MG, BID
     Route: 048
     Dates: start: 20121008
  14. DOCUSATE SODIUM [Concomitant]
     Indication: PROPHYLAXIS
     Dosage: 100 MG, BID
     Route: 048
     Dates: start: 20121008
  15. SENOKOT (SENNA) [Concomitant]
     Indication: PROPHYLAXIS
     Dosage: 17.2 MG, HS
     Route: 048
     Dates: start: 20121008
  16. IBUPROFEN [Concomitant]
     Indication: BACK PAIN
     Dosage: 600 MG, PRN
     Route: 048
     Dates: start: 20121213
  17. ACETAMINOPHEN [Concomitant]
     Indication: BACK PAIN
     Dosage: 1000 MG, PRN
     Route: 048
     Dates: start: 20121025
  18. SYMBICORT [Concomitant]
     Indication: ASTHMA
     Dosage: 200/6
     Dates: start: 20130103
  19. NYSTATIN [Concomitant]
     Indication: FUNGAL INFECTION
     Dosage: 4 ML, PRN
     Route: 048
     Dates: start: 20130131
  20. NAPROXEN [Concomitant]
     Indication: BACK PAIN
     Dosage: 500 MG, BID
     Dates: start: 20121210
  21. CLOTRIMADERM [Concomitant]
     Indication: ECZEMA
     Dosage: 1 %, BID
     Route: 061
     Dates: start: 20121109
  22. METHADONE HYDROCHLORIDE [Concomitant]
     Indication: DRUG DEPENDENCE
     Dosage: 85 MG, QD
     Route: 048
     Dates: start: 20130118, end: 20130503
  23. METHADONE HYDROCHLORIDE [Concomitant]
     Indication: DRUG DEPENDENCE
     Dosage: 90 MG, QD
     Route: 048
     Dates: start: 20130504, end: 20130506
  24. METHADONE HYDROCHLORIDE [Concomitant]
     Indication: DRUG DEPENDENCE
     Dosage: 85 MG, QD
     Route: 048
     Dates: start: 20130507
  25. SEROQUEL [Concomitant]
     Indication: AFFECTIVE DISORDER
     Dosage: 600 MG, HS
     Route: 048
     Dates: start: 20130412, end: 20130503
  26. VYVANSE [Concomitant]
     Indication: ATTENTION DEFICIT/HYPERACTIVITY DISORDER
     Dosage: 40 MG, QD
     Route: 048
     Dates: start: 20130412, end: 20130503
  27. VYVANSE [Concomitant]
     Indication: ATTENTION DEFICIT/HYPERACTIVITY DISORDER
     Dosage: 50 MG, QD
     Route: 048
     Dates: start: 20130504
  28. NIZORAL [Concomitant]
     Indication: PROPHYLAXIS
     Dosage: 2 %, BID
     Route: 061
     Dates: start: 20130412, end: 20130503
  29. SEROQUEL [Concomitant]
     Indication: AFFECTIVE DISORDER
     Dosage: 300 MG, HS
     Route: 048
     Dates: start: 20130504
  30. CANESTEN [Concomitant]
     Indication: PROPHYLAXIS
     Dosage: 2 %, BID
     Route: 061
     Dates: start: 20130504
  31. VITAMIN D (UNSPECIFIED) [Concomitant]
     Indication: PROPHYLAXIS
     Dosage: 10000 IU, QW
     Route: 048
     Dates: start: 20130508

REACTIONS (3)
  - Anaemia [Recovered/Resolved]
  - Pneumonia [Recovering/Resolving]
  - Lung abscess [Not Recovered/Not Resolved]
